FAERS Safety Report 15434781 (Version 1)
Quarter: 2018Q4

REPORT INFORMATION
  Report Type: Spontaneous
  Country: GR (occurrence: GR)
  Receive Date: 20180927
  Receipt Date: 20180927
  Transmission Date: 20190204
  Serious: Yes (Life-Threatening)
  Sender: FDA-Public Use
  Company Number: GR-PFIZER INC-2018389244

PATIENT
  Age: 76 Year
  Sex: Male
  Weight: 75 kg

DRUGS (1)
  1. PIPERACILLIN/TAZOBACTAM [Suspect]
     Active Substance: PIPERACILLIN SODIUM\TAZOBACTAM SODIUM
     Indication: RESPIRATORY TRACT INFECTION
     Dosage: 1 DF, UNK
     Route: 042
     Dates: start: 20180902, end: 20180902

REACTIONS (2)
  - Rash [Recovered/Resolved]
  - Haemodynamic instability [Recovered/Resolved]

NARRATIVE: CASE EVENT DATE: 20180902
